FAERS Safety Report 25300817 (Version 1)
Quarter: 2025Q2

REPORT INFORMATION
  Report Type: Spontaneous
  Country: US (occurrence: None)
  Receive Date: 20250509
  Receipt Date: 20250509
  Transmission Date: 20250716
  Serious: Yes (Hospitalization)
  Sender: FDA-CTU
  Company Number: None

PATIENT
  Age: 29 Year
  Sex: Female
  Weight: 59.85 kg

DRUGS (9)
  1. OZEMPIC [Suspect]
     Active Substance: SEMAGLUTIDE
     Indication: Type 2 diabetes mellitus
     Route: 058
     Dates: start: 20250418, end: 20250504
  2. ENVARSUS XR [Concomitant]
     Active Substance: TACROLIMUS
  3. ZOLOFT [Concomitant]
     Active Substance: SERTRALINE HYDROCHLORIDE
  4. MIRTAZAPINE [Concomitant]
     Active Substance: MIRTAZAPINE
  5. SPRAVATO [Concomitant]
     Active Substance: ESKETAMINE
  6. BELATACEPT [Concomitant]
     Active Substance: BELATACEPT
  7. CLONAZEPAM [Concomitant]
     Active Substance: CLONAZEPAM
  8. TYLENOL [Concomitant]
     Active Substance: ACETAMINOPHEN
  9. VITAMIN D [Concomitant]
     Active Substance: VITAMIN D NOS

REACTIONS (7)
  - Nausea [None]
  - Vomiting [None]
  - Blood electrolytes abnormal [None]
  - Blood magnesium decreased [None]
  - Blood phosphorus decreased [None]
  - Job dissatisfaction [None]
  - Food poisoning [None]

NARRATIVE: CASE EVENT DATE: 20250505
